FAERS Safety Report 7741005-2 (Version None)
Quarter: 2011Q3

REPORT INFORMATION
  Report Type: 
  Country: None (occurrence: None)
  Receive Date: 20110909
  Receipt Date: 20110907
  Transmission Date: 20111222
  Serious: Yes (Death, Hospitalization)
  Sender: FDA-Public Use
  Company Number: FR-BAYER-2011-082312

PATIENT
  Age: 70 Year
  Sex: Male

DRUGS (12)
  1. GLUCOVANCE [Suspect]
     Indication: TYPE 2 DIABETES MELLITUS
     Route: 048
  2. ACARBOSE [Suspect]
     Indication: TYPE 2 DIABETES MELLITUS
  3. VENTOLIN [Concomitant]
  4. SERETIDE [Concomitant]
  5. FLECAINIDE ACETATE [Concomitant]
  6. MODOPAR [Concomitant]
  7. PERMIXON [Concomitant]
  8. DIGOXIN [Concomitant]
  9. LITHIUM CARBONATE [Concomitant]
  10. SINGULAIR [Concomitant]
  11. ZOPICLONE [Concomitant]
  12. PLAVIX [Concomitant]

REACTIONS (2)
  - HYPOGLYCAEMIC ENCEPHALOPATHY [None]
  - RESPIRATORY TRACT CONGESTION [None]
